FAERS Safety Report 23197424 (Version 1)
Quarter: 2023Q4

REPORT INFORMATION
  Report Type: Spontaneous
  Country: US (occurrence: US)
  Receive Date: 20231117
  Receipt Date: 20231117
  Transmission Date: 20240110
  Serious: Yes (Hospitalization)
  Sender: FDA-Public Use
  Company Number: US-Fresenius Medical Care Renal Therapies Group-FMC-2311-001220

PATIENT
  Age: 87 Year
  Sex: Female
  Weight: 82.5 kg

DRUGS (2)
  1. DELFLEX WITH DEXTROSE 1.5% LOW MAGNESIUM LOW CALCIUM [Suspect]
     Active Substance: CALCIUM CHLORIDE\DEXTROSE\MAGNESIUM CHLORIDE\SODIUM CHLORIDE\SODIUM LACTATE
     Dosage: 2500 ML FOR 6 CYCLES WITH A LAST FILL OF 200 ML AND NO DAYTIME EXCHANGE
     Route: 033
     Dates: start: 20230530
  2. DELFLEX WITH DEXTROSE 2.5% LOW MAGNESIUM LOW CALCIUM [Suspect]
     Active Substance: CALCIUM CHLORIDE\DEXTROSE\MAGNESIUM CHLORIDE\SODIUM CHLORIDE\SODIUM LACTATE
     Dosage: 500 ML FOR 6 CYCLES WITH A LAST FILL OF 200 ML AND NO DAYTIME EXCHANGE
     Route: 033
     Dates: start: 20230530

REACTIONS (2)
  - Cardiac failure [Unknown]
  - Ultrafiltration failure [Unknown]
